FAERS Safety Report 22320872 (Version 2)
Quarter: 2023Q2

REPORT INFORMATION
  Report Type: Report from Study
  Country: GB (occurrence: GB)
  Receive Date: 20230515
  Receipt Date: 20230628
  Transmission Date: 20230722
  Serious: Yes (Hospitalization)
  Sender: FDA-Public Use
  Company Number: GB-ROCHE-3342884

PATIENT
  Age: 52 Year
  Sex: Female

DRUGS (19)
  1. CAPECITABINE [Suspect]
     Active Substance: CAPECITABINE
     Indication: HER2 positive breast cancer
     Dosage: 3600 MILLIGRAM DAILY; SUBSEQUENT DOSE OF  ORALLY CAPECITABINE 1650 MG, TWICE DAILY WAS ADMINISTERED
     Route: 048
     Dates: start: 20170905, end: 20210427
  2. DOCETAXEL [Suspect]
     Active Substance: DOCETAXEL
     Indication: HER2 positive breast cancer
     Dosage: CYCLE 7,
     Route: 042
     Dates: start: 20160706, end: 20161026
  3. DOCETAXEL [Suspect]
     Active Substance: DOCETAXEL
     Dosage: CYCLE 1,
     Route: 042
     Dates: start: 20160615, end: 20160615
  4. DOCETAXEL [Suspect]
     Active Substance: DOCETAXEL
     Dosage: CYCLE 1,
     Route: 042
     Dates: start: 20160524, end: 20160524
  5. LETROZOLE [Suspect]
     Active Substance: LETROZOLE
     Indication: HER2 positive breast cancer
     Dosage: 2.5 MILLIGRAM DAILY;
     Route: 048
     Dates: start: 20211012
  6. PERTUZUMAB [Suspect]
     Active Substance: PERTUZUMAB
     Indication: HER2 positive breast cancer
     Dosage: CYCLE 1,
     Route: 042
     Dates: start: 20160523, end: 20160523
  7. PERTUZUMAB [Suspect]
     Active Substance: PERTUZUMAB
     Dosage: CYCLE 5,
     Route: 042
     Dates: start: 20160615, end: 20160914
  8. PERTUZUMAB [Suspect]
     Active Substance: PERTUZUMAB
     Dosage: PLANNED NUMBER OF CYCLES COMPLETED,
     Route: 042
     Dates: start: 20161026, end: 20170503
  9. TRASTUZUMAB [Suspect]
     Active Substance: TRASTUZUMAB
     Indication: HER2 positive breast cancer
     Route: 041
     Dates: start: 20160524, end: 20170412
  10. ADO-TRASTUZUMAB EMTANSINE [Suspect]
     Active Substance: ADO-TRASTUZUMAB EMTANSINE
     Indication: HER2 positive breast cancer
     Route: 042
     Dates: start: 20170524, end: 20170816
  11. CALCIUM CARBONATE\CHOLECALCIFEROL [Concomitant]
     Active Substance: CALCIUM CARBONATE\CHOLECALCIFEROL
     Indication: Product used for unknown indication
     Route: 048
     Dates: start: 20170117
  12. DENOSUMAB [Concomitant]
     Active Substance: DENOSUMAB
     Indication: Metastases to bone
     Route: 042
     Dates: start: 20160523
  13. DEXAMETHASONE [Concomitant]
     Active Substance: DEXAMETHASONE
     Indication: Product used for unknown indication
     Dosage: BID FOR 3 DAYS, START DAY BEFORE CHEMO,
     Route: 048
     Dates: start: 20160523, end: 20161004
  14. DOMPERIDONE [Concomitant]
     Active Substance: DOMPERIDONE
     Indication: Nausea
     Route: 048
     Dates: end: 20211125
  15. LOPERAMIDE [Concomitant]
     Active Substance: LOPERAMIDE
     Indication: Diarrhoea
     Route: 048
     Dates: start: 20170905, end: 20200225
  16. ONDANSETRON [Concomitant]
     Active Substance: ONDANSETRON
     Indication: Nausea
     Route: 048
     Dates: start: 20160523
  17. ONDANSETRON [Concomitant]
     Active Substance: ONDANSETRON
     Route: 065
     Dates: start: 20160524, end: 20201026
  18. TINZAPARIN [Concomitant]
     Active Substance: TINZAPARIN
     Indication: Thrombosis
     Dosage: 4500 U,
     Route: 058
     Dates: start: 20181127, end: 20181130
  19. ZOLEDRONIC ACID [Concomitant]
     Active Substance: ZOLEDRONIC ACID
     Indication: Metastases to bone
     Route: 042
     Dates: start: 20170926, end: 20200225

REACTIONS (1)
  - Urinary tract infection [Recovered/Resolved]

NARRATIVE: CASE EVENT DATE: 20230301
